FAERS Safety Report 23740982 (Version 2)
Quarter: 2025Q4

REPORT INFORMATION
  Report Type: Spontaneous
  Country: CA (occurrence: CA)
  Receive Date: 20240415
  Receipt Date: 20251118
  Transmission Date: 20260117
  Serious: Yes (Life-Threatening)
  Sender: BAUSCH AND LOMB
  Company Number: CA-BAUSCH-BL-2024-005713

PATIENT
  Age: 48 Year
  Sex: Male

DRUGS (9)
  1. DEXAMETHASONE [Suspect]
     Active Substance: DEXAMETHASONE
     Indication: Papilloedema
     Dosage: SOLUTION OPHTHALMIC
     Route: 065
  2. TOPIRAMATE [Suspect]
     Active Substance: TOPIRAMATE
     Indication: Papilloedema
     Route: 065
  3. TOPIRAMATE [Suspect]
     Active Substance: TOPIRAMATE
     Dosage: INCREASED DOSE
     Route: 065
  4. METHAZOLAMIDE [Suspect]
     Active Substance: METHAZOLAMIDE
     Indication: Papilloedema
     Route: 065
  5. ASPIRIN [Concomitant]
     Active Substance: ASPIRIN
     Indication: Product used for unknown indication
  6. TACROLIMUS [Concomitant]
     Active Substance: TACROLIMUS
     Indication: Product used for unknown indication
  7. MYCOPHENOLIC ACID [Concomitant]
     Active Substance: MYCOPHENOLIC ACID
     Indication: Product used for unknown indication
  8. ERGOCALCIFEROL [Concomitant]
     Active Substance: ERGOCALCIFEROL
     Indication: Product used for unknown indication
  9. ACETAZOLAMIDE [Concomitant]
     Active Substance: ACETAZOLAMIDE
     Indication: Papilloedema

REACTIONS (1)
  - Therapy non-responder [Unknown]
